FAERS Safety Report 10530725 (Version 2)
Quarter: 2014Q4

REPORT INFORMATION
  Report Type: Spontaneous
  Country: IT (occurrence: None)
  Receive Date: 20141017
  Receipt Date: 20141106
  Transmission Date: 20150528
  Serious: Yes (Hospitalization)
  Sender: FDA-Public Use
  Company Number: FK201404119

PATIENT
  Age: 66 Year
  Sex: Male

DRUGS (5)
  1. PACLITAXEL. [Suspect]
     Active Substance: PACLITAXEL
     Indication: LUNG ADENOCARCINOMA METASTATIC
     Dosage: DAYS 1, 8, 15 OF 21 DAY CYCLE
     Route: 042
     Dates: start: 20140912, end: 20140922
  2. ONDANSETRON HYDROCHLORIDE (ONDANSETRON HYDROCHLORIDE) [Concomitant]
     Active Substance: ONDANSETRON HYDROCHLORIDE
  3. CHLORPHENAMINE MALEATE (CHLORPHENAMINE MALEATE) [Concomitant]
  4. RANITIDINE HYDROCHLORIDE (RANITIDINE HYDROCHLORIDE) [Concomitant]
  5. DEXAMETHASONE SODIUM PHOSPHATE (DEXAMETHASONE SODIUM PHOSPHATE) [Concomitant]
     Active Substance: DEXAMETHASONE SODIUM PHOSPHATE

REACTIONS (5)
  - Headache [None]
  - Urinary incontinence [None]
  - Dyspnoea [None]
  - Cyanosis [None]
  - Erythema [None]

NARRATIVE: CASE EVENT DATE: 20140922
